FAERS Safety Report 14982382 (Version 1)
Quarter: 2018Q2

REPORT INFORMATION
  Report Type: Spontaneous
  Country: US (occurrence: US)
  Receive Date: 20180517
  Receipt Date: 20180517
  Transmission Date: 20180711
  Serious: Yes (Hospitalization)
  Sender: FDA-Public Use
  Company Number: None

PATIENT
  Age: 55 Year
  Sex: Male

DRUGS (10)
  1. CARVEDILOL 3.125MG [Concomitant]
  2. RAMIPRIL 1.25MG [Concomitant]
     Active Substance: RAMIPRIL
  3. PRAVASTATIN 10MG [Concomitant]
     Active Substance: PRAVASTATIN
  4. REMICADE [Suspect]
     Active Substance: INFLIXIMAB
     Indication: RHEUMATOID ARTHRITIS
  5. PANTOPRAZOLE 20MG [Concomitant]
     Active Substance: PANTOPRAZOLE SODIUM
  6. ALLOPURINOL 100MG [Concomitant]
     Active Substance: ALLOPURINOL
  7. ASPIRIN 81MG [Concomitant]
     Active Substance: ASPIRIN
  8. GEMFIBROZIL 600MG [Concomitant]
     Active Substance: GEMFIBROZIL
  9. TRAMADOL 50MG [Concomitant]
     Active Substance: TRAMADOL
  10. CLOPIDOGREL [Concomitant]
     Active Substance: CLOPIDOGREL BISULFATE

REACTIONS (1)
  - Infection [None]

NARRATIVE: CASE EVENT DATE: 20180501
